FAERS Safety Report 18452753 (Version 2)
Quarter: 2020Q4

REPORT INFORMATION
  Report Type: Spontaneous
  Country: US (occurrence: US)
  Receive Date: 20201102
  Receipt Date: 20201201
  Transmission Date: 20210114
  Serious: No
  Sender: FDA-Public Use
  Company Number: US-PFIZER INC-2020420968

PATIENT

DRUGS (9)
  1. ALEVE [Suspect]
     Active Substance: NAPROXEN SODIUM
     Indication: PAIN
     Dosage: UNK
  2. ALEVE [Suspect]
     Active Substance: NAPROXEN SODIUM
     Indication: HEADACHE
  3. ADVIL [Suspect]
     Active Substance: IBUPROFEN
     Indication: CHEST PAIN
  4. TYLENOL [Suspect]
     Active Substance: ACETAMINOPHEN
     Indication: HEADACHE
  5. ADVIL [Suspect]
     Active Substance: IBUPROFEN
     Indication: PAIN
     Dosage: UNK
  6. ADVIL [Suspect]
     Active Substance: IBUPROFEN
     Indication: HEADACHE
  7. TYLENOL [Suspect]
     Active Substance: ACETAMINOPHEN
     Indication: PAIN
     Dosage: UNK
  8. TYLENOL [Suspect]
     Active Substance: ACETAMINOPHEN
     Indication: CHEST PAIN
  9. ALEVE [Suspect]
     Active Substance: NAPROXEN SODIUM
     Indication: CHEST PAIN

REACTIONS (1)
  - Abdominal discomfort [Unknown]
